FAERS Safety Report 10765817 (Version 1)
Quarter: 2015Q1

REPORT INFORMATION
  Report Type: Spontaneous
  Country: US (occurrence: None)
  Receive Date: 20150204
  Receipt Date: 20150204
  Transmission Date: 20150721
  Serious: Yes (Life-Threatening)
  Sender: FDA-Public Use
  Company Number: None

PATIENT
  Age: 49 Year
  Sex: Male
  Weight: 133.81 kg

DRUGS (1)
  1. CONTRAVE [Suspect]
     Active Substance: BUPROPION HYDROCHLORIDE\NALTREXONE HYDROCHLORIDE
     Indication: OBESITY
     Dosage: 2 PILL TWICE DAILY TAKEN BY MOUTH
     Route: 048
     Dates: start: 20141216, end: 20141230

REACTIONS (6)
  - Dizziness [None]
  - Chest pain [None]
  - Hypoaesthesia [None]
  - Dyspnoea [None]
  - Pain in extremity [None]
  - Anxiety [None]

NARRATIVE: CASE EVENT DATE: 20141230
